FAERS Safety Report 10332887 (Version 1)
Quarter: 2014Q3

REPORT INFORMATION
  Report Type: Spontaneous
  Country: GB (occurrence: GB)
  Receive Date: 20140722
  Receipt Date: 20140722
  Transmission Date: 20150326
  Serious: Yes (Hospitalization, Disabling, Other)
  Sender: FDA-Public Use
  Company Number: GB-BAUSCH-BL-2014-003267

PATIENT
  Sex: Female

DRUGS (2)
  1. DEXAMETHASONE. [Suspect]
     Active Substance: DEXAMETHASONE
     Indication: PRODUCT USED FOR UNKNOWN INDICATION
  2. TEMOZOLOMIDE [Suspect]
     Active Substance: TEMOZOLOMIDE
     Indication: PRODUCT USED FOR UNKNOWN INDICATION
     Route: 048
     Dates: start: 2011, end: 2011

REACTIONS (7)
  - Recurrent cancer [Unknown]
  - Drug intolerance [Unknown]
  - Bedridden [Unknown]
  - Skin disorder [Unknown]
  - Transfusion [Unknown]
  - Disability [Unknown]
  - Epistaxis [Unknown]

NARRATIVE: CASE EVENT DATE: 2011
